FAERS Safety Report 9017678 (Version 5)
Quarter: 2013Q2

REPORT INFORMATION
  Report Type: Spontaneous
  Country: US (occurrence: US)
  Receive Date: 20130118
  Receipt Date: 20130502
  Transmission Date: 20140414
  Serious: Yes (Other)
  Sender: FDA-Public Use
  Company Number: US-009507513-1301USA004733

PATIENT
  Sex: Male

DRUGS (3)
  1. PEG-INTRON [Suspect]
     Indication: HEPATITIS C
     Dosage: UNK, REDIPEN
     Route: 058
     Dates: start: 20130108, end: 20130301
  2. RIBAVIRIN [Suspect]
     Indication: HEPATITIS C
     Dosage: UNK
     Route: 048
     Dates: start: 20130108, end: 20130301
  3. BOCEPREVIR [Suspect]
     Indication: HEPATITIS C
     Dosage: UNK
     Route: 048
     Dates: start: 20130204, end: 20130301

REACTIONS (23)
  - Dehydration [Unknown]
  - Feeling cold [Unknown]
  - Hypoaesthesia [Unknown]
  - Headache [Unknown]
  - Nausea [Unknown]
  - Dysgeusia [Unknown]
  - Decreased appetite [Unknown]
  - Irritability [Unknown]
  - Asthenia [Unknown]
  - Weight decreased [Unknown]
  - Nausea [Not Recovered/Not Resolved]
  - Decreased appetite [Unknown]
  - Vomiting [Not Recovered/Not Resolved]
  - Visual impairment [Unknown]
  - Irritability [Unknown]
  - Visual impairment [Unknown]
  - Weight decreased [Unknown]
  - Decreased appetite [Unknown]
  - Dysgeusia [Unknown]
  - Somnolence [Unknown]
  - Vomiting [Unknown]
  - Fatigue [Unknown]
  - Memory impairment [Unknown]
